FAERS Safety Report 9721282 (Version 1)
Quarter: 2013Q4

REPORT INFORMATION
  Report Type: Spontaneous
  Country: US (occurrence: US)
  Receive Date: 20131129
  Receipt Date: 20131129
  Transmission Date: 20140711
  Serious: No
  Sender: FDA-Public Use
  Company Number: US-PFIZER INC-2013338148

PATIENT
  Age: 47 Year
  Sex: Female

DRUGS (12)
  1. ADVIL [Suspect]
     Dosage: UNK
  2. TETRACYCLINE HCL [Suspect]
     Dosage: UNK
  3. VIBRAMYCIN [Suspect]
  4. ALEVE [Suspect]
     Dosage: UNK
  5. BUSPAR [Suspect]
     Dosage: UNK
  6. E.E.S. [Suspect]
     Dosage: UNK
  7. IMITREX [Suspect]
     Dosage: UNK
  8. INAPSINE [Suspect]
     Dosage: UNK
  9. NUBAIN [Suspect]
     Dosage: UNK
  10. TORADOL [Suspect]
     Dosage: UNK
  11. ZOMIG [Suspect]
     Dosage: UNK
  12. ULTRAM [Suspect]
     Dosage: UNK

REACTIONS (1)
  - Drug hypersensitivity [Unknown]
